FAERS Safety Report 15289884 (Version 1)
Quarter: 2018Q3

REPORT INFORMATION
  Report Type: Spontaneous
  Country: US (occurrence: US)
  Receive Date: 20180804
  Receipt Date: 20180804
  Transmission Date: 20181010
  Serious: No
  Sender: FDA-Public Use
  Company Number: None

PATIENT
  Age: 11 Year
  Sex: Male
  Weight: 54 kg

DRUGS (1)
  1. IC METHYLPHENIDATE ER 27MG TAB [Suspect]
     Active Substance: METHYLPHENIDATE
     Indication: ATTENTION DEFICIT/HYPERACTIVITY DISORDER
     Dosage: ?          QUANTITY:90 TABLET(S);?
     Route: 048
     Dates: start: 20180717, end: 20180802

REACTIONS (3)
  - Aggression [None]
  - Anger [None]
  - Product substitution issue [None]

NARRATIVE: CASE EVENT DATE: 20180717
